FAERS Safety Report 5314982-7 (Version None)
Quarter: 2007Q2

REPORT INFORMATION
  Report Type: 
  Country: None (occurrence: None)
  Receive Date: 20070502
  Receipt Date: 20070423
  Transmission Date: 20071010
  Serious: Yes (Hospitalization)
  Sender: FDA-Public Use
  Company Number: US-ABBOTT-07P-163-0365861-00

PATIENT
  Sex: Female

DRUGS (5)
  1. HUMIRA [Suspect]
     Indication: CROHN'S DISEASE
     Route: 058
     Dates: start: 20061113, end: 20061127
  2. HUMIRA [Suspect]
     Route: 058
     Dates: start: 20061127, end: 20061211
  3. HUMIRA [Suspect]
     Route: 058
     Dates: start: 20061211
  4. PREDNISONE TAB [Concomitant]
     Indication: CROHN'S DISEASE
     Route: 048
  5. LEVOTHYROXINE SODIUM [Concomitant]
     Indication: HYPOTHYROIDISM
     Route: 048

REACTIONS (3)
  - CROHN'S DISEASE [None]
  - PAIN IN EXTREMITY [None]
  - SMALL INTESTINAL OBSTRUCTION [None]
